FAERS Safety Report 15328455 (Version 1)
Quarter: 2018Q3

REPORT INFORMATION
  Report Type: Spontaneous
  Country: US (occurrence: US)
  Receive Date: 20180829
  Receipt Date: 20180829
  Transmission Date: 20181010
  Serious: Yes (Other)
  Sender: FDA-Public Use
  Company Number: US-EDENBRIDGE PHARMACEUTICALS, LLC-US-2018EDE000252

PATIENT

DRUGS (3)
  1. ROPINIROLE. [Suspect]
     Active Substance: ROPINIROLE
     Indication: PARKINSON^S DISEASE
     Dosage: 5 MG, TID (TAKEN MORE FREQUENTLY THAN PRESCRIBED)
  2. LEVODOPA [Suspect]
     Active Substance: LEVODOPA
     Indication: PARKINSON^S DISEASE
     Dosage: 5 DF, QD (TAKEN MORE FREQUENTLY THAN PRESCRIBED)
  3. CARBIDOPA. [Suspect]
     Active Substance: CARBIDOPA
     Indication: PARKINSON^S DISEASE
     Dosage: 5 DF, QD (TAKEN MORE FREQUENTLY THAN PRESCRIBED)

REACTIONS (2)
  - Dopamine dysregulation syndrome [Unknown]
  - Drug abuse [Unknown]
